FAERS Safety Report 20825550 (Version 1)
Quarter: 2022Q2

REPORT INFORMATION
  Report Type: Spontaneous
  Country: IT (occurrence: IT)
  Receive Date: 20220513
  Receipt Date: 20220513
  Transmission Date: 20220721
  Serious: Yes (Other)
  Sender: FDA-Public Use
  Company Number: None

PATIENT
  Age: 30 Year
  Sex: Female

DRUGS (2)
  1. PANTOPRAZOLE [Suspect]
     Active Substance: PANTOPRAZOLE
     Indication: Abdominal pain upper
     Route: 048
     Dates: start: 20220328, end: 20220328
  2. XANAX [Suspect]
     Active Substance: ALPRAZOLAM
     Indication: Panic attack
     Route: 048
     Dates: start: 20220328, end: 20220328

REACTIONS (3)
  - Intentional product misuse [Recovering/Resolving]
  - Chills [Recovering/Resolving]
  - Urticaria [Recovering/Resolving]

NARRATIVE: CASE EVENT DATE: 20220328
